FAERS Safety Report 4489895-3 (Version None)
Quarter: 2004Q4

REPORT INFORMATION
  Report Type: 
  Country: None (occurrence: None)
  Receive Date: 20041026
  Receipt Date: 20041014
  Transmission Date: 20050328
  Serious: Yes (Hospitalization)
  Sender: FDA-Public Use
  Company Number: 2004PK01716

PATIENT
  Age: 74 Year
  Sex: Male
  Weight: 91 kg

DRUGS (7)
  1. NEXIUM [Suspect]
     Indication: THERMAL BURN
     Dosage: 20 MG DAILY PO
     Route: 048
     Dates: start: 20040827, end: 20040903
  2. PRAVASTATIN SODIUM [Suspect]
     Indication: HYPERCHOLESTEROLAEMIA
     Dosage: 20 MG DAILY PO
     Route: 048
     Dates: end: 20040903
  3. ASPIRIN [Concomitant]
  4. NORVASC [Concomitant]
  5. CONCOR [Concomitant]
  6. STARLIX [Concomitant]
  7. HALCION [Concomitant]

REACTIONS (3)
  - MYOPATHY [None]
  - RHABDOMYOLYSIS [None]
  - SYNCOPE [None]
